FAERS Safety Report 17312672 (Version 3)
Quarter: 2020Q1

REPORT INFORMATION
  Report Type: Report from Study
  Country: PE (occurrence: PE)
  Receive Date: 20200123
  Receipt Date: 20200323
  Transmission Date: 20200409
  Serious: Yes (Hospitalization, Other)
  Sender: FDA-Public Use
  Company Number: PE-SEATTLE GENETICS-2020SGN00285

PATIENT
  Sex: Female

DRUGS (1)
  1. BRENTUXIMAB VEDOTIN-MPI [Suspect]
     Active Substance: BRENTUXIMAB VEDOTIN
     Indication: CUTANEOUS T-CELL LYMPHOMA
     Dosage: 136 MG, UNK
     Route: 042
     Dates: start: 20180927

REACTIONS (5)
  - Cytomegalovirus infection [Unknown]
  - Vomiting [Unknown]
  - Rash [Unknown]
  - Transplant rejection [Unknown]
  - Liver disorder [Unknown]
